FAERS Safety Report 6182783-6 (Version None)
Quarter: 2009Q2

REPORT INFORMATION
  Report Type: 
  Country: None (occurrence: None)
  Receive Date: 20090507
  Receipt Date: 20090402
  Transmission Date: 20091009
  Serious: Yes (Hospitalization, Other)
  Sender: FDA-Public Use
  Company Number: US-PFIZER INC-2008100507

PATIENT
  Age: 68 Year
  Sex: Male

DRUGS (9)
  1. LYRICA [Suspect]
     Indication: DIABETIC NEUROPATHY
     Dates: start: 20081125, end: 20081126
  2. INSULIN [Concomitant]
  3. NIASPAN [Concomitant]
  4. ASPIRIN [Concomitant]
  5. DIOVAN [Concomitant]
  6. VYTORIN [Concomitant]
  7. ACTOS [Concomitant]
  8. PLAVIX [Concomitant]
  9. GLYBURIDE [Concomitant]

REACTIONS (3)
  - CARDIAC ENZYMES INCREASED [None]
  - DIZZINESS [None]
  - MYOCARDIAL INFARCTION [None]
